FAERS Safety Report 8045426-2 (Version None)
Quarter: 2012Q1

REPORT INFORMATION
  Report Type: 
  Country: None (occurrence: None)
  Receive Date: 20120113
  Receipt Date: 20120104
  Transmission Date: 20120608
  Serious: Yes (Hospitalization, Other)
  Sender: FDA-Public Use
  Company Number: IL-ELI_LILLY_AND_COMPANY-IL201201001731

PATIENT
  Age: 52 Year
  Sex: Male

DRUGS (5)
  1. PEMETREXED [Suspect]
     Dosage: 100 TO 200MG EVERY 1-2 WEEKS
  2. IRINOTECAN HYDROCHLORIDE [Concomitant]
     Indication: NON-SMALL CELL LUNG CANCER STAGE II
     Dosage: 150 MG/M2 DAYS 1, 8 EVERY 3 WEEKS.
  3. PEMETREXED [Suspect]
     Indication: NON-SMALL CELL LUNG CANCER
     Dosage: 500 MG/M2, UNK
  4. PEMETREXED [Suspect]
     Dosage: 400MG TOTAL
  5. PEMETREXED [Suspect]
     Dosage: 800MG TOTAL

REACTIONS (9)
  - PULMONARY TOXICITY [None]
  - HYPERSENSITIVITY [None]
  - RESPIRATORY DISORDER [None]
  - NEOPLASM PROGRESSION [None]
  - EMPHYSEMA [None]
  - SKIN TOXICITY [None]
  - OEDEMA PERIPHERAL [None]
  - PNEUMONITIS [None]
  - BLOOD LACTATE DEHYDROGENASE INCREASED [None]
